FAERS Safety Report 13807712 (Version 1)
Quarter: 2017Q3

REPORT INFORMATION
  Report Type: Report from Study
  Country: US (occurrence: US)
  Receive Date: 20170728
  Receipt Date: 20170728
  Transmission Date: 20171127
  Serious: No
  Sender: FDA-Public Use
  Company Number: US-AMNEAL PHARMACEUTICALS-2017AMN00698

PATIENT
  Age: 33 Year
  Sex: Female
  Weight: 68.27 kg

DRUGS (6)
  1. KITOTIFEN EYE DROPS [Concomitant]
  2. TOPIRAMATE TABLETS [Concomitant]
     Active Substance: TOPIRAMATE
     Dosage: 25 MG, 1X/DAY
  3. FAMOTIDINE TABLET [Concomitant]
  4. TOPIRAMATE TABLETS [Concomitant]
     Active Substance: TOPIRAMATE
     Dosage: 50 MG, 1X/DAY
  5. LORATIDINE 24 HOURS [Concomitant]
     Dosage: UNK
     Dates: start: 20170525
  6. TRAMADOL HYDROCHLORIDE. [Suspect]
     Active Substance: TRAMADOL HYDROCHLORIDE
     Indication: BACK PAIN
     Dosage: UNK
     Dates: start: 20170224, end: 20170502

REACTIONS (2)
  - Product substitution issue [Unknown]
  - Drug ineffective [Unknown]

NARRATIVE: CASE EVENT DATE: 20170224
